FAERS Safety Report 17327390 (Version 3)
Quarter: 2020Q1

REPORT INFORMATION
  Report Type: Spontaneous
  Country: US (occurrence: US)
  Receive Date: 20200127
  Receipt Date: 20200227
  Transmission Date: 20200409
  Serious: Yes (Other)
  Sender: FDA-Public Use
  Company Number: US-PFIZER INC-2020035212

PATIENT
  Age: 63 Year
  Sex: Female
  Weight: 72.57 kg

DRUGS (4)
  1. PREMPRO [Suspect]
     Active Substance: ESTROGENS, CONJUGATED\MEDROXYPROGESTERONE ACETATE
     Indication: MENOPAUSE
     Dosage: 1 DF, DAILY (1, 0.625 MG/2.5 MG TABLET BY MOUTH EACH DAY)
     Route: 048
  2. LISINOPRIL. [Concomitant]
     Active Substance: LISINOPRIL
     Indication: HYPERTENSION
     Dosage: 20 MG, DAILY(20 MG BY MOUTH EACH DAY )
     Route: 048
     Dates: start: 2008
  3. PREMPRO [Suspect]
     Active Substance: ESTROGENS, CONJUGATED\MEDROXYPROGESTERONE ACETATE
     Indication: SLEEP DISORDER
  4. PREMPRO [Suspect]
     Active Substance: ESTROGENS, CONJUGATED\MEDROXYPROGESTERONE ACETATE
     Indication: HOT FLUSH

REACTIONS (3)
  - Vaginal haemorrhage [Unknown]
  - Feeling abnormal [Unknown]
  - Menstrual disorder [Unknown]
